FAERS Safety Report 8884880 (Version 1)
Quarter: 2012Q4

REPORT INFORMATION
  Report Type: 
  Country: US (occurrence: US)
  Receive Date: 20121102
  Receipt Date: 20121102
  Transmission Date: 20130627
  Serious: Yes (Hospitalization)
  Sender: FDA-Public Use
  Company Number: US-SHIRE-ALL1-2012-05282

PATIENT
  Sex: Male

DRUGS (1)
  1. ELAPRASE [Suspect]
     Indication: MUCOPOLYSACCHARIDOSIS II
     Dosage: 36 mg, 1x/week
     Route: 041
     Dates: start: 20061108

REACTIONS (2)
  - Cardiac disorder [Recovering/Resolving]
  - Gastroenteritis viral [Recovering/Resolving]
